FAERS Safety Report 15082391 (Version 5)
Quarter: 2018Q4

REPORT INFORMATION
  Report Type: Report from Study
  Country: US (occurrence: US)
  Receive Date: 20180628
  Receipt Date: 20181015
  Transmission Date: 20190204
  Serious: Yes (Other)
  Sender: FDA-Public Use
  Company Number: US-PFIZER INC-2018261108

PATIENT
  Age: 45 Year
  Sex: Female

DRUGS (1)
  1. IBRANCE [Suspect]
     Active Substance: PALBOCICLIB
     Indication: BREAST CANCER
     Dosage: 125 MG, CYCLIC(21 ON, 7 OFF, X21 DAYS OFF X 7 DAYS)(21 DAYS ON AND 7 DAYS OFF)
     Route: 048
     Dates: start: 20180605

REACTIONS (6)
  - Bone marrow failure [Recovering/Resolving]
  - Arthralgia [Unknown]
  - Leukopenia [Recovering/Resolving]
  - Asthenopia [Unknown]
  - Toothache [Recovered/Resolved]
  - Fatigue [Not Recovered/Not Resolved]

NARRATIVE: CASE EVENT DATE: 201806
